FAERS Safety Report 9909655 (Version 2)
Quarter: 2014Q1

REPORT INFORMATION
  Report Type: Spontaneous
  Country: JP (occurrence: JP)
  Receive Date: 20140219
  Receipt Date: 20140227
  Transmission Date: 20141002
  Serious: Yes (Other)
  Sender: FDA-Public Use
  Company Number: JP-GLAXOSMITHKLINE-B0970203A

PATIENT
  Age: 75 Year
  Sex: Female

DRUGS (1)
  1. FLUTIDE DISKUS [Suspect]
     Indication: ASTHMA
     Route: 055

REACTIONS (2)
  - Haemorrhage subcutaneous [Recovered/Resolved]
  - Product quality issue [Unknown]
